FAERS Safety Report 15122359 (Version 1)
Quarter: 2018Q3

REPORT INFORMATION
  Report Type: Spontaneous
  Country: US (occurrence: US)
  Receive Date: 20180709
  Receipt Date: 20180709
  Transmission Date: 20181010
  Serious: No
  Sender: FDA-Public Use
  Company Number: US-BAYER-2018-122208

PATIENT
  Sex: Female
  Weight: 73.97 kg

DRUGS (2)
  1. BAYER ASPIRIN [Suspect]
     Active Substance: ASPIRIN
     Indication: PAIN
     Dosage: NO MORE THAN 2 TABLETS AS NEEDED
     Route: 048
  2. ALEVE [Suspect]
     Active Substance: NAPROXEN SODIUM
     Indication: PAIN
     Dosage: MORE THAN 2 TABLETS AS NEEDED
     Route: 048

REACTIONS (3)
  - Ulcer [Unknown]
  - Wrong technique in product usage process [Unknown]
  - Contraindicated product administered [Unknown]
